FAERS Safety Report 8852448 (Version 5)
Quarter: 2015Q4

REPORT INFORMATION
  Report Type: Report from Study
  Country: ES (occurrence: ES)
  Receive Date: 20121022
  Receipt Date: 20151110
  Transmission Date: 20160305
  Serious: Yes (Hospitalization)
  Sender: FDA-Public Use
  Company Number: ES-ROCHE-1146265

PATIENT
  Age: 48 Year
  Sex: Female

DRUGS (14)
  1. DOCETAXEL. [Suspect]
     Active Substance: DOCETAXEL
     Indication: BREAST CANCER
     Dosage: DATE OF LAST DOSE PRIOR TO SAE:08/OCT/2012
     Route: 042
     Dates: start: 20120824
  2. FORTECORTIN [Concomitant]
     Active Substance: DEXAMETHASONE
     Route: 065
     Dates: start: 20121029, end: 20130213
  3. TRASTUZUMAB [Suspect]
     Active Substance: TRASTUZUMAB
     Indication: BREAST CANCER
     Dosage: LOADING DOSE (AS PER PROTOCOL).
     Route: 042
     Dates: start: 20120824
  4. NEUPOGEN [Concomitant]
     Active Substance: FILGRASTIM
     Indication: NEUTROPENIA
     Route: 065
     Dates: start: 20120824, end: 20120824
  5. PERTUZUMAB [Suspect]
     Active Substance: PERTUZUMAB
     Dosage: MAINTAINANCE DOSE. ?DATE OF LAST DOSE PRIOR TO SAE:08/OCT/2012.
     Route: 042
     Dates: start: 20120914
  6. AUGMENTINE [Concomitant]
     Active Substance: AMOXICILLIN\CLAVULANATE POTASSIUM
     Dosage: 875/125 MG
     Route: 065
     Dates: start: 20121125, end: 20121129
  7. NAPROXENO [Concomitant]
     Route: 065
     Dates: start: 20120825, end: 20121008
  8. PERTUZUMAB [Suspect]
     Active Substance: PERTUZUMAB
     Indication: BREAST CANCER
     Dosage: LOADING DOSE (AS PER PROTOCOL).
     Route: 042
     Dates: start: 20120824
  9. INNOHEP [Concomitant]
     Active Substance: TINZAPARIN SODIUM
     Indication: DEEP VEIN THROMBOSIS
     Dosage: TOTAL DAILY DOSE: 20000/0.5 U/ML
     Route: 065
     Dates: start: 20121012
  10. AUGMENTINE [Concomitant]
     Active Substance: AMOXICILLIN\CLAVULANATE POTASSIUM
     Route: 065
     Dates: start: 20120901, end: 20120910
  11. TRASTUZUMAB [Suspect]
     Active Substance: TRASTUZUMAB
     Dosage: MAINTAINANCE DOSE, LAST DOSE PRIOR TO SAE: 08/OCT/2012, DOSE RECEIVED 390 MG
     Route: 042
     Dates: start: 20120914
  12. ATARAX [Concomitant]
     Active Substance: HYDROXYZINE\HYDROXYZINE HYDROCHLORIDE
     Dosage: ON 12/OCT/2012 ANOTHER DOSE WAS GIVEN.
     Route: 065
     Dates: start: 20120820, end: 20130606
  13. ATARAX [Concomitant]
     Active Substance: HYDROXYZINE\HYDROXYZINE HYDROCHLORIDE
     Route: 065
     Dates: start: 20121012, end: 20130606
  14. FORTECORTIN [Concomitant]
     Active Substance: DEXAMETHASONE
     Route: 065
     Dates: start: 20130214

REACTIONS (1)
  - Cellulitis [Recovered/Resolved]

NARRATIVE: CASE EVENT DATE: 20121012
